FAERS Safety Report 12675901 (Version 1)
Quarter: 2016Q3

REPORT INFORMATION
  Report Type: Spontaneous
  Country: US (occurrence: None)
  Receive Date: 20160822
  Receipt Date: 20160822
  Transmission Date: 20161109
  Serious: No
  Sender: FDA-Public Use
  Company Number: None

PATIENT
  Age: 25 Year
  Sex: Male
  Weight: 68.04 kg

DRUGS (4)
  1. VYVANSE [Concomitant]
     Active Substance: LISDEXAMFETAMINE DIMESYLATE
  2. LATANOPROST OPHTHALMIC SOLUTION [Suspect]
     Active Substance: LATANOPROST
     Indication: OCULAR HYPERTENSION
     Dosage: AT BEDTIME INTO THE EYE
     Route: 047
     Dates: start: 20160609, end: 20160819
  3. MEGA MEN GNC VITAMIN [Concomitant]
  4. ADVIL [Concomitant]
     Active Substance: IBUPROFEN

REACTIONS (2)
  - Hypermetropia [None]
  - Vision blurred [None]

NARRATIVE: CASE EVENT DATE: 20160623
